APPROVED DRUG PRODUCT: DICLOFENAC SODIUM
Active Ingredient: DICLOFENAC SODIUM
Strength: 2%
Dosage Form/Route: SOLUTION;TOPICAL
Application: A213040 | Product #001 | TE Code: AB
Applicant: AUROLIFE PHARMA LLC
Approved: Feb 3, 2023 | RLD: No | RS: No | Type: RX